FAERS Safety Report 6489703-5 (Version None)
Quarter: 2009Q4

REPORT INFORMATION
  Report Type: 
  Country: None (occurrence: None)
  Receive Date: 20091207
  Receipt Date: 20091120
  Transmission Date: 20100525
  Serious: Yes (Death)
  Sender: FDA-Public Use
  Company Number: 2009AL007409

PATIENT
  Age: 16 Month
  Sex: Male

DRUGS (5)
  1. OXYCODONE HCL [Suspect]
  2. TRAMADOL HCL [Suspect]
  3. NAPROXEN [Suspect]
  4. CIMETIDINE HYDROCHLORIDE ORAL SOLUTION, EQ. 300 MG [Suspect]
  5. DIPHENHYDRAMINE HCL [Concomitant]

REACTIONS (2)
  - ACCIDENTAL DRUG INTAKE BY CHILD [None]
  - RESPIRATORY ARREST [None]
